FAERS Safety Report 7399660-5 (Version None)
Quarter: 2011Q2

REPORT INFORMATION
  Report Type: 
  Country: None (occurrence: None)
  Receive Date: 20110407
  Receipt Date: 20100722
  Transmission Date: 20111010
  Serious: No
  Sender: FDA-Public Use
  Company Number: US-KINGPHARMUSA00001-K201000930

PATIENT
  Age: 48 Year
  Sex: Male
  Weight: 50.34 kg

DRUGS (5)
  1. LORTAB [Concomitant]
     Dosage: UNK
  2. MUCINEX [Concomitant]
  3. TRAMADOL [Concomitant]
     Indication: PAIN
  4. SKELAXIN [Suspect]
     Indication: BACK PAIN
     Dosage: 400-800 MG, PRN, 2-4 TIMES DAILY
     Route: 048
     Dates: start: 20020701
  5. SKELAXIN [Suspect]
     Indication: BURNING SENSATION

REACTIONS (5)
  - TEMPERATURE INTOLERANCE [None]
  - PAIN IN EXTREMITY [None]
  - MUSCLE TIGHTNESS [None]
  - MUSCLE SPASMS [None]
  - MUSCULOSKELETAL PAIN [None]
